FAERS Safety Report 4824490-5 (Version None)
Quarter: 2005Q4

REPORT INFORMATION
  Report Type: 
  Country: None (occurrence: None)
  Receive Date: 20051108
  Receipt Date: 20051027
  Transmission Date: 20060501
  Serious: Yes (Hospitalization, Other)
  Sender: FDA-Public Use
  Company Number: DE_051017344

PATIENT
  Age: 55 Year
  Sex: Female

DRUGS (2)
  1. GEMZAR [Suspect]
     Indication: NEOPLASM MALIGNANT
     Dosage: 1000 MG/M2
  2. ZOMETA [Concomitant]

REACTIONS (3)
  - COORDINATION ABNORMAL [None]
  - DIZZINESS [None]
  - POLYNEUROPATHY [None]
